FAERS Safety Report 19013172 (Version 2)
Quarter: 2021Q1

REPORT INFORMATION
  Report Type: Spontaneous
  Country: JP (occurrence: JP)
  Receive Date: 20210315
  Receipt Date: 20210323
  Transmission Date: 20210420
  Serious: Yes (Other)
  Sender: FDA-Public Use
  Company Number: JP-ROCHE-2787596

PATIENT
  Age: 50 Year
  Sex: Male
  Weight: 50.9 kg

DRUGS (3)
  1. BICTEGRAVIR SODIUM;EMTRICITABINE;TENOFOVIR ALAFENAMIDE FUMARATE [Suspect]
     Active Substance: BICTEGRAVIR SODIUM\EMTRICITABINE\TENOFOVIR ALAFENAMIDE FUMARATE
     Indication: HIV INFECTION
     Dosage: 1 DOSAGE FORM
     Route: 048
     Dates: start: 20191011
  2. RAMELTEON [Concomitant]
     Active Substance: RAMELTEON
     Dates: start: 20191011
  3. VALGANCICLOVIR HYDROCHLORIDE. [Suspect]
     Active Substance: VALGANCICLOVIR HYDROCHLORIDE
     Indication: CYTOMEGALOVIRUS INFECTION
     Route: 048
     Dates: start: 20191011

REACTIONS (3)
  - Atypical mycobacterial infection [Recovered/Resolved]
  - Renal impairment [Not Recovered/Not Resolved]
  - White blood cell count decreased [Not Recovered/Not Resolved]

NARRATIVE: CASE EVENT DATE: 20191013
